FAERS Safety Report 8283544-4 (Version None)
Quarter: 2012Q1

REPORT INFORMATION
  Report Type: 
  Country: None (occurrence: None)
  Receive Date: 20120316
  Receipt Date: 20090528
  Transmission Date: 20120608
  Serious: Yes (Other)
  Sender: FDA-Public Use
  Company Number: PHEH2008US09830

PATIENT
  Sex: Female

DRUGS (7)
  1. DIOVAN [Suspect]
     Indication: HYPERTENSION
     Dosage: 80;320 MG
     Dates: start: 20080101
  2. TEKTURNA [Suspect]
     Indication: HYPERTENSION
     Dosage: 300 MG
  3. LEVOTHYROXINE SODIUM [Concomitant]
  4. CELEBREX [Concomitant]
  5. FUROSEMIDE (FUROSEMIDE) [Concomitant]
  6. ATENOLOL [Suspect]
     Indication: HYPERTENSION
     Dosage: 100 MG
  7. PAROXETINE HCL [Concomitant]

REACTIONS (3)
  - DRUG INEFFECTIVE [None]
  - HYPERTENSION [None]
  - PALPITATIONS [None]
